FAERS Safety Report 8843382 (Version 1)
Quarter: 2012Q4

REPORT INFORMATION
  Report Type: 
  Country: US (occurrence: US)
  Receive Date: 20121016
  Receipt Date: 20121016
  Transmission Date: 20130627
  Serious: Yes (Hospitalization)
  Sender: FDA-Public Use
  Company Number: US-TEVA-363986USA

PATIENT
  Age: 53 Year
  Sex: Male

DRUGS (2)
  1. COPAXONE [Suspect]
     Indication: MULTIPLE SCLEROSIS
     Dates: start: 20110826
  2. AMPYRA [Concomitant]

REACTIONS (2)
  - Fluid retention [Unknown]
  - Weight decreased [Unknown]
